FAERS Safety Report 8911894 (Version 1)
Quarter: 2012Q4

REPORT INFORMATION
  Report Type: Report from Study
  Country: CA (occurrence: CA)
  Receive Date: 20121116
  Receipt Date: 20121116
  Transmission Date: 20130627
  Serious: Yes (Hospitalization)
  Sender: FDA-Public Use
  Company Number: CA-JNJFOC-20121104816

PATIENT
  Sex: Female

DRUGS (1)
  1. REMICADE [Suspect]
     Indication: RHEUMATOID ARTHRITIS
     Route: 042
     Dates: start: 20120629, end: 20120810

REACTIONS (5)
  - Pneumonia legionella [Recovering/Resolving]
  - Respiratory distress [Recovering/Resolving]
  - Skin ulcer [Recovering/Resolving]
  - Weight decreased [Recovering/Resolving]
  - Muscular weakness [Recovering/Resolving]
